FAERS Safety Report 14159430 (Version 1)
Quarter: 2017Q4

REPORT INFORMATION
  Report Type: Spontaneous
  Country: US (occurrence: US)
  Receive Date: 20171103
  Receipt Date: 20171103
  Transmission Date: 20180321
  Serious: Yes (Hospitalization)
  Sender: FDA-Public Use
  Company Number: US-DSJP-DSU-2017-139339

PATIENT

DRUGS (1)
  1. BENICAR [Suspect]
     Active Substance: OLMESARTAN MEDOXOMIL
     Indication: HYPERTENSION
     Dosage: 40 MG, QD
     Route: 048
     Dates: start: 20111027, end: 20170801

REACTIONS (7)
  - Diverticulum [Unknown]
  - Diverticular perforation [Unknown]
  - Gastrooesophageal reflux disease [Unknown]
  - Enterovesical fistula [Unknown]
  - Colonic abscess [Unknown]
  - Diverticulitis [Unknown]
  - Malabsorption [Recovering/Resolving]

NARRATIVE: CASE EVENT DATE: 20130506
